FAERS Safety Report 19044663 (Version 7)
Quarter: 2024Q1

REPORT INFORMATION
  Report Type: Spontaneous
  Country: AT (occurrence: AT)
  Receive Date: 20210322
  Receipt Date: 20240227
  Transmission Date: 20240409
  Serious: Yes (Hospitalization)
  Sender: FDA-Public Use
  Company Number: NVSC2021AT056354

PATIENT
  Age: 42 Year
  Sex: Female
  Weight: 60 kg

DRUGS (63)
  1. FEMARA [Suspect]
     Active Substance: LETROZOLE
     Indication: HER2 positive breast cancer
     Dosage: 2.5 MG, QD
     Route: 048
     Dates: start: 20180426, end: 20200225
  2. TRENANTONE [Suspect]
     Active Substance: LEUPROLIDE ACETATE
     Indication: HER2 positive breast cancer
     Dosage: 11.25 MG, Q3MO
     Route: 058
     Dates: start: 201804, end: 20200225
  3. TRENANTONE [Suspect]
     Active Substance: LEUPROLIDE ACETATE
     Indication: HER2 positive breast cancer
  4. HERCEPTIN [Suspect]
     Active Substance: TRASTUZUMAB
     Indication: HER2 positive breast cancer
     Dosage: 600 MILLIGRAM, Q3WEEKS
     Route: 058
     Dates: start: 20180503, end: 20190502
  5. HERCEPTIN [Suspect]
     Active Substance: TRASTUZUMAB
     Indication: HER2 positive breast cancer
     Dosage: 600 MG, TIW
     Route: 058
     Dates: start: 20190509, end: 20191227
  6. HERCEPTIN [Suspect]
     Active Substance: TRASTUZUMAB
     Indication: Breast cancer
     Route: 058
  7. DENOSUMAB [Suspect]
     Active Substance: DENOSUMAB
     Indication: Breast cancer
     Dosage: 120 MILLIGRAM, MONTHLY
     Route: 058
     Dates: start: 201611, end: 20181129
  8. KADCYLA [Suspect]
     Active Substance: ADO-TRASTUZUMAB EMTANSINE
     Indication: HER2 positive breast cancer
     Dosage: 3.6 MG/KG, Q3W
     Route: 042
     Dates: start: 20161114, end: 20170424
  9. KADCYLA [Suspect]
     Active Substance: ADO-TRASTUZUMAB EMTANSINE
     Indication: HER2 positive breast cancer
     Dosage: 3.6 MG/KG, Q4W
     Route: 042
     Dates: start: 20170821, end: 20171120
  10. KADCYLA [Suspect]
     Active Substance: ADO-TRASTUZUMAB EMTANSINE
     Indication: Breast cancer
     Dosage: UNK UNK, Q4WEEKS
     Route: 042
     Dates: start: 20161114, end: 20170522
  11. KADCYLA [Suspect]
     Active Substance: ADO-TRASTUZUMAB EMTANSINE
     Route: 065
  12. LAFENE [Concomitant]
     Indication: General physical health deterioration
     Dosage: ONGOING = NOT CHECKED
     Route: 065
     Dates: start: 20200225, end: 20200417
  13. LAFENE [Concomitant]
     Indication: Spinal pain
     Dosage: ONGOING = NOT CHECKED
     Route: 065
     Dates: start: 20190421, end: 20200224
  14. LAFENE [Concomitant]
     Indication: Spinal pain
     Dosage: 12 UG/HR
     Route: 065
     Dates: start: 20181113
  15. LAFENE [Concomitant]
     Indication: Spinal pain
     Dosage: UNK
     Route: 065
     Dates: start: 20190421, end: 20200224
  16. LAFENE [Concomitant]
     Dosage: UNK
     Route: 065
     Dates: start: 20200225, end: 20200417
  17. POLYETHYLENE GLYCOL 3350\POTASSIUM CHLORIDE\SODIUM BICARBONATE\SODIUM [Concomitant]
     Active Substance: POLYETHYLENE GLYCOL 3350\POTASSIUM CHLORIDE\SODIUM BICARBONATE\SODIUM CHLORIDE
     Indication: Nausea
     Dosage: ONGOING = NOT CHECKED
     Route: 065
     Dates: start: 20200306, end: 20200311
  18. POLYETHYLENE GLYCOL 3350\POTASSIUM CHLORIDE\SODIUM BICARBONATE\SODIUM [Concomitant]
     Active Substance: POLYETHYLENE GLYCOL 3350\POTASSIUM CHLORIDE\SODIUM BICARBONATE\SODIUM CHLORIDE
     Indication: Vomiting
     Route: 065
     Dates: start: 20200306, end: 20200311
  19. ACETAMINOPHEN [Concomitant]
     Active Substance: ACETAMINOPHEN
     Indication: Vomiting
     Dosage: ONGOING = NOT CHECKED
     Route: 065
     Dates: start: 20200228, end: 20200228
  20. ACETAMINOPHEN [Concomitant]
     Active Substance: ACETAMINOPHEN
     Indication: Nausea
     Dosage: UNK
     Route: 065
     Dates: start: 20200228, end: 20200228
  21. ACETAMINOPHEN [Concomitant]
     Active Substance: ACETAMINOPHEN
     Indication: Metastases to central nervous system
     Dosage: ONGOING = NOT CHECKED
     Route: 065
     Dates: start: 20170609, end: 20200417
  22. ACETAMINOPHEN [Concomitant]
     Active Substance: ACETAMINOPHEN
     Indication: Metastases to central nervous system
     Dosage: UNK
     Route: 065
     Dates: start: 20170609, end: 20200417
  23. NOVALGIN [Concomitant]
     Indication: Product used for unknown indication
     Dosage: 30 DRP
     Route: 065
     Dates: start: 20181117, end: 20200417
  24. NOVALGIN [Concomitant]
     Indication: Product used for unknown indication
     Dosage: 35 DRP, Q6H
     Route: 065
     Dates: start: 20181112, end: 20181116
  25. NOVALGIN [Concomitant]
     Dosage: UNK
     Route: 065
     Dates: start: 20181117, end: 20200417
  26. FRAGMIN [Concomitant]
     Active Substance: DALTEPARIN SODIUM
     Indication: Product used for unknown indication
     Dosage: ONGOING = NOT CHECKED
     Route: 065
     Dates: start: 20200228, end: 20200311
  27. FRAGMIN [Concomitant]
     Active Substance: DALTEPARIN SODIUM
     Indication: Product used for unknown indication
  28. MIRANAX [Concomitant]
     Indication: Product used for unknown indication
     Dosage: 550 MG
     Route: 065
     Dates: start: 20161115, end: 20200417
  29. MIRANAX [Concomitant]
     Indication: Product used for unknown indication
     Dosage: UNK
     Route: 065
     Dates: start: 20161115, end: 20200417
  30. ZOLPIDEM [Concomitant]
     Active Substance: ZOLPIDEM TARTRATE
     Indication: Vomiting
     Dosage: ONGOING = NOT CHECKED
     Route: 065
     Dates: start: 20200228, end: 20200417
  31. ZOLPIDEM [Concomitant]
     Active Substance: ZOLPIDEM TARTRATE
     Indication: Nausea
     Dosage: 10 MG
     Route: 065
     Dates: start: 20200228, end: 20200417
  32. ZOLPIDEM [Concomitant]
     Active Substance: ZOLPIDEM TARTRATE
     Dosage: UNK
     Route: 065
     Dates: start: 20200228, end: 20200417
  33. ZOFRAN ZYDIS LINGUAL [Concomitant]
     Indication: Product used for unknown indication
     Dosage: UNK
     Route: 065
     Dates: start: 20161115, end: 20200417
  34. EMEND [Concomitant]
     Active Substance: APREPITANT
     Indication: Product used for unknown indication
     Dosage: 80 MG
     Route: 065
     Dates: start: 20161115, end: 20200417
  35. EMEND [Concomitant]
     Active Substance: APREPITANT
     Indication: Product used for unknown indication
     Dosage: UNK
     Route: 065
     Dates: start: 20161115, end: 20200417
  36. MEFENAMIC ACID [Concomitant]
     Active Substance: MEFENAMIC ACID
     Indication: Product used for unknown indication
     Dosage: ONGOING = NOT CHECKED
     Route: 065
     Dates: start: 20181113, end: 20181120
  37. MEFENAMIC ACID [Concomitant]
     Active Substance: MEFENAMIC ACID
     Dosage: ONGOING = NOT CHECKED
     Route: 065
     Dates: start: 20170315, end: 20200417
  38. MEFENAMIC ACID [Concomitant]
     Active Substance: MEFENAMIC ACID
     Dosage: UNK
     Route: 065
     Dates: start: 20170315, end: 20200417
  39. MORPHINE [Concomitant]
     Active Substance: MORPHINE
     Indication: General physical health deterioration
     Dosage: UNK
     Route: 065
     Dates: start: 20200225, end: 20200417
  40. LYRICA [Concomitant]
     Active Substance: PREGABALIN
     Indication: General physical health deterioration
     Dosage: ONGOING = NOT CHECKED
     Route: 065
     Dates: start: 20200225, end: 20200417
  41. LYRICA [Concomitant]
     Active Substance: PREGABALIN
     Dosage: UNK
     Route: 065
     Dates: start: 20200225, end: 20200417
  42. DEXAMETHASONE [Concomitant]
     Active Substance: DEXAMETHASONE
     Indication: Nausea
     Dosage: 8 MG, QD
     Route: 065
     Dates: start: 20170330, end: 20200417
  43. DEXAMETHASONE [Concomitant]
     Active Substance: DEXAMETHASONE
     Indication: Vomiting
     Dosage: 40 MG, QD
     Route: 065
     Dates: start: 20200229, end: 20200302
  44. DEXAMETHASONE [Concomitant]
     Active Substance: DEXAMETHASONE
     Dosage: 4 MG, QD
     Route: 065
     Dates: start: 20200303, end: 20200309
  45. DEXAMETHASONE [Concomitant]
     Active Substance: DEXAMETHASONE
     Dosage: 40 MG, QD
     Route: 065
     Dates: start: 20170330, end: 20170330
  46. DEXAMETHASONE [Concomitant]
     Active Substance: DEXAMETHASONE
     Dosage: UNK
     Route: 065
     Dates: start: 20200303, end: 20200309
  47. DEXAMETHASONE [Concomitant]
     Active Substance: DEXAMETHASONE
     Dosage: UNK
     Route: 065
     Dates: start: 20170330, end: 20200417
  48. DEXAMETHASONE [Concomitant]
     Active Substance: DEXAMETHASONE
     Dosage: UNK
     Route: 065
     Dates: start: 20200229, end: 20200302
  49. ZOFRAN [Concomitant]
     Active Substance: ONDANSETRON HYDROCHLORIDE
     Indication: Vomiting
     Dosage: 4 MG, QD
     Route: 065
     Dates: start: 20200228, end: 20200228
  50. ZOFRAN [Concomitant]
     Active Substance: ONDANSETRON HYDROCHLORIDE
     Indication: Nausea
     Dosage: UNK, UNK, QD
     Route: 065
     Dates: start: 20200228, end: 20200228
  51. MORPHINE [Concomitant]
     Active Substance: MORPHINE
     Indication: General physical health deterioration
     Dosage: ONGOING = NOT CHECKED
     Route: 065
     Dates: start: 20200225, end: 20200417
  52. MORPHINE [Concomitant]
     Active Substance: MORPHINE
     Dosage: 10 MG, QD
     Route: 065
     Dates: start: 20170530, end: 20200417
  53. MORPHINE [Concomitant]
     Active Substance: MORPHINE
     Dosage: UNK
     Route: 065
     Dates: start: 20200225, end: 20200417
  54. VENLAFAXINE HYDROCHLORIDE [Concomitant]
     Active Substance: VENLAFAXINE HYDROCHLORIDE
     Indication: Product used for unknown indication
     Dosage: 75 MG, QD
     Route: 065
     Dates: start: 20190228
  55. DICLOFENAC SODIUM\ORPHENADRINE CITRATE [Concomitant]
     Active Substance: DICLOFENAC SODIUM\ORPHENADRINE CITRATE
     Indication: Product used for unknown indication
     Dosage: 250 ML, QD
     Route: 065
     Dates: start: 20181112, end: 20181113
  56. DICLOFENAC SODIUM\ORPHENADRINE CITRATE [Concomitant]
     Active Substance: DICLOFENAC SODIUM\ORPHENADRINE CITRATE
     Dosage: 250 ML, QD
     Route: 065
     Dates: start: 20181115, end: 20181116
  57. XGEVA [Concomitant]
     Active Substance: DENOSUMAB
     Indication: Product used for unknown indication
     Dosage: 120 MG, QMO
     Route: 065
     Dates: start: 20190319, end: 201904
  58. XGEVA [Concomitant]
     Active Substance: DENOSUMAB
     Dosage: 120 MG, QMO
     Route: 065
     Dates: start: 2016, end: 20181129
  59. PERJETA [Suspect]
     Active Substance: PERTUZUMAB
     Indication: HER2 positive breast cancer
     Dosage: 840 MILLIGRAM, Q3WEEKS
     Route: 058
     Dates: start: 20181122, end: 20181122
  60. PERJETA [Suspect]
     Active Substance: PERTUZUMAB
     Indication: HER2 positive breast cancer
     Dosage: 420 MILLIGRAM, Q3WEEKS
     Route: 058
     Dates: start: 201811
  61. PERJETA [Suspect]
     Active Substance: PERTUZUMAB
     Indication: Breast cancer
     Dosage: 420 MG, TIW
     Route: 058
     Dates: start: 20181213, end: 20190502
  62. XICLAV [Concomitant]
     Indication: Product used for unknown indication
     Route: 065
     Dates: start: 20181113, end: 20181120
  63. AMOXICILLIN [Concomitant]
     Active Substance: AMOXICILLIN
     Indication: Product used for unknown indication
     Dosage: UNK
     Route: 065
     Dates: start: 201904, end: 201904

REACTIONS (2)
  - Post herpetic neuralgia [Not Recovered/Not Resolved]
  - Pain in extremity [Not Recovered/Not Resolved]

NARRATIVE: CASE EVENT DATE: 20200225
